FAERS Safety Report 11610780 (Version 1)
Quarter: 2015Q4

REPORT INFORMATION
  Report Type: Spontaneous
  Country: US (occurrence: None)
  Receive Date: 20151007
  Receipt Date: 20151007
  Transmission Date: 20160304
  Serious: Yes (Life-Threatening, Hospitalization)
  Sender: FDA-Public Use
  Company Number: None

PATIENT
  Age: 52 Year
  Sex: Male
  Weight: 77.11 kg

DRUGS (1)
  1. CEFDINIR 300 [Suspect]
     Active Substance: CEFDINIR
     Indication: SINUSITIS
     Route: 048
     Dates: start: 20150124, end: 20150128

REACTIONS (1)
  - Clostridium difficile colitis [None]

NARRATIVE: CASE EVENT DATE: 20140112
